FAERS Safety Report 6779192-5 (Version None)
Quarter: 2010Q2

REPORT INFORMATION
  Report Type: 
  Country: None (occurrence: None)
  Receive Date: 20100618
  Receipt Date: 20100615
  Transmission Date: 20101027
  Serious: Yes (Hospitalization)
  Sender: FDA-Public Use
  Company Number: FR-SANOFI-AVENTIS-2010SA034527

PATIENT
  Age: 80 Year
  Sex: Female

DRUGS (4)
  1. RIFADIN [Suspect]
     Route: 048
     Dates: start: 20100224, end: 20100424
  2. RIMIFON [Suspect]
     Route: 048
     Dates: start: 20100224, end: 20100424
  3. DAFALGAN [Concomitant]
     Indication: DRUG USE FOR UNKNOWN INDICATION
     Route: 065
  4. LOVENOX [Concomitant]
     Indication: DRUG USE FOR UNKNOWN INDICATION
     Route: 058

REACTIONS (2)
  - PANCYTOPENIA [None]
  - THROMBOCYTOPENIA [None]
